FAERS Safety Report 7980752-4 (Version None)
Quarter: 2011Q4

REPORT INFORMATION
  Report Type: 
  Country: None (occurrence: None)
  Receive Date: 20111214
  Receipt Date: 20111021
  Transmission Date: 20120403
  Serious: No
  Sender: FDA-Public Use
  Company Number: US-BAYER-2011-103089

PATIENT

DRUGS (5)
  1. ASPIRIN [Interacting]
     Dosage: 1 DF, QD
     Route: 048
  2. MULTI-VITAMIN [Concomitant]
  3. VITAMIN D [Concomitant]
  4. CRESTOR [Concomitant]
     Dosage: 5 MG, UNK
  5. ALEVE (CAPLET) [Suspect]
     Indication: BACK PAIN
     Dosage: 1 DF, QD
     Route: 048

REACTIONS (1)
  - NO ADVERSE EVENT [None]
